FAERS Safety Report 18540487 (Version 3)
Quarter: 2020Q4

REPORT INFORMATION
  Report Type: Spontaneous
  Country: US (occurrence: US)
  Receive Date: 20201124
  Receipt Date: 20201209
  Transmission Date: 20210114
  Serious: No
  Sender: FDA-Public Use
  Company Number: US-PFIZER INC-2019279103

PATIENT
  Age: 1 Year
  Sex: Male

DRUGS (1)
  1. EUCRISA [Suspect]
     Active Substance: CRISABOROLE
     Dosage: UNK UNK, 2X/DAY, ALL OVER BODY

REACTIONS (4)
  - Product prescribing error [Unknown]
  - Dry skin [Unknown]
  - Sensitivity to weather change [Unknown]
  - Off label use [Unknown]
